FAERS Safety Report 6739147-3 (Version None)
Quarter: 2010Q2

REPORT INFORMATION
  Report Type: 
  Country: None (occurrence: None)
  Receive Date: 20100525
  Receipt Date: 20100518
  Transmission Date: 20101027
  Serious: Yes (Death, Hospitalization)
  Sender: FDA-Public Use
  Company Number: FR-CELGENEUS-056-21880-09102188

PATIENT
  Sex: Female
  Weight: 71 kg

DRUGS (15)
  1. REVLIMID [Suspect]
     Indication: OVARIAN CANCER
     Route: 048
     Dates: start: 20091014, end: 20091024
  2. CARBOPLATIN [Suspect]
     Indication: OVARIAN CANCER
     Route: 065
     Dates: start: 20100120
  3. CARBOPLATIN [Suspect]
     Route: 065
     Dates: start: 20091014, end: 20091014
  4. CAELYX [Suspect]
     Indication: OVARIAN CANCER
     Route: 065
     Dates: start: 20100120
  5. CAELYX [Suspect]
     Route: 065
     Dates: start: 20091014, end: 20091014
  6. KARDEGIC [Concomitant]
     Indication: DRUG USE FOR UNKNOWN INDICATION
     Route: 065
  7. FLUOXETINE [Concomitant]
     Indication: DRUG USE FOR UNKNOWN INDICATION
     Route: 065
     Dates: start: 20050101
  8. BROMAZEPAM [Concomitant]
     Indication: DRUG USE FOR UNKNOWN INDICATION
     Route: 065
     Dates: start: 20050101
  9. NEXIUM [Concomitant]
     Indication: DRUG USE FOR UNKNOWN INDICATION
     Route: 065
     Dates: start: 20050101
  10. PERFALGAN [Concomitant]
     Indication: DRUG USE FOR UNKNOWN INDICATION
     Route: 065
     Dates: start: 20050101
  11. SPASFON [Concomitant]
     Indication: DRUG USE FOR UNKNOWN INDICATION
     Route: 065
  12. CONTRAMAL [Concomitant]
     Indication: DRUG USE FOR UNKNOWN INDICATION
     Route: 065
  13. MOTILIUM [Concomitant]
     Indication: DRUG USE FOR UNKNOWN INDICATION
     Route: 065
     Dates: start: 20050101
  14. DI-ANTALVIC [Concomitant]
     Indication: DRUG USE FOR UNKNOWN INDICATION
     Route: 065
     Dates: start: 20050101
  15. CA-125 [Concomitant]
     Indication: DRUG USE FOR UNKNOWN INDICATION
     Route: 065
     Dates: start: 20091114

REACTIONS (24)
  - ABDOMINAL WALL ABSCESS [None]
  - ASCITES [None]
  - BACTERIAL INFECTION [None]
  - BACTEROIDES INFECTION [None]
  - BLOOD ALBUMIN DECREASED [None]
  - CHOLESTASIS [None]
  - CLOSTRIDIAL INFECTION [None]
  - CYTOLYTIC HEPATITIS [None]
  - DEEP VEIN THROMBOSIS [None]
  - ELECTROCARDIOGRAM QRS COMPLEX PROLONGED [None]
  - ENTEROCOCCAL INFECTION [None]
  - ESCHERICHIA INFECTION [None]
  - FLATULENCE [None]
  - GASTRIC STENOSIS [None]
  - LYMPHANGIOSIS CARCINOMATOSA [None]
  - MALIGNANT NEOPLASM PROGRESSION [None]
  - METASTASES TO LYMPH NODES [None]
  - OVARIAN EPITHELIAL CANCER [None]
  - PORPHYROMONAS INFECTION [None]
  - PULMONARY EMBOLISM [None]
  - STREPTOCOCCAL INFECTION [None]
  - SUBILEUS [None]
  - THROMBOCYTOPENIA [None]
  - VEILLONELLA INFECTION [None]
